FAERS Safety Report 5590416-2 (Version None)
Quarter: 2008Q1

REPORT INFORMATION
  Report Type: 
  Country: None (occurrence: None)
  Receive Date: 20080114
  Receipt Date: 20070215
  Transmission Date: 20080703
  Serious: No
  Sender: FDA-Public Use
  Company Number: US-ABBOTT-07P-163-0359923-00

PATIENT
  Sex: Female
  Weight: 84.898 kg

DRUGS (3)
  1. HYTRIN CAPSULES 1MG [Suspect]
     Indication: HYPERTENSION
     Route: 048
     Dates: start: 20070201, end: 20070204
  2. ATENOLOL [Concomitant]
     Indication: DRUG USE FOR UNKNOWN INDICATION
     Route: 048
  3. PREDNISONE TAB [Concomitant]
     Indication: DRUG USE FOR UNKNOWN INDICATION
     Route: 048
     Dates: start: 19890101, end: 20070101

REACTIONS (5)
  - BLOOD PRESSURE INCREASED [None]
  - CHILLS [None]
  - NAUSEA [None]
  - PARAESTHESIA [None]
  - RASH [None]
